FAERS Safety Report 9703357 (Version 3)
Quarter: 2014Q2

REPORT INFORMATION
  Report Type: Report from Study
  Country: JP (occurrence: JP)
  Receive Date: 20131122
  Receipt Date: 20140407
  Transmission Date: 20141212
  Serious: Yes (Hospitalization)
  Sender: FDA-Public Use
  Company Number: PHHY2013JP077346

PATIENT
  Age: 32 Year
  Sex: Male

DRUGS (54)
  1. LEPONEX / CLOZARIL [Suspect]
     Indication: SCHIZOPHRENIA, CATATONIC TYPE
     Dosage: 12.5 MG, DAILY
     Route: 048
     Dates: start: 20120125, end: 20120125
  2. LEPONEX / CLOZARIL [Suspect]
     Dosage: 25 MG, DAILY
     Route: 048
     Dates: start: 20120126, end: 20120127
  3. LEPONEX / CLOZARIL [Suspect]
     Dosage: 50 MG, DAILY
     Route: 048
     Dates: start: 20120128, end: 20120130
  4. LEPONEX / CLOZARIL [Suspect]
     Dosage: 75 MG, DAILY
     Route: 048
     Dates: start: 20120131, end: 20120202
  5. LEPONEX / CLOZARIL [Suspect]
     Dosage: 100 MG, DAILY
     Route: 048
     Dates: start: 20120203, end: 20120206
  6. LEPONEX / CLOZARIL [Suspect]
     Dosage: 125 MG, DAILY
     Route: 048
     Dates: start: 20120207, end: 20120209
  7. LEPONEX / CLOZARIL [Suspect]
     Dosage: 150 MG, DAILY
     Route: 048
     Dates: start: 20120210, end: 20120213
  8. LEPONEX / CLOZARIL [Suspect]
     Dosage: 175 MG, DAILY
     Route: 048
     Dates: start: 20120214, end: 20120216
  9. LEPONEX / CLOZARIL [Suspect]
     Dosage: 200 MG, DAILY
     Route: 048
     Dates: start: 20120217, end: 20120220
  10. LEPONEX / CLOZARIL [Suspect]
     Dosage: 300 MG, DAILY
     Route: 048
     Dates: start: 20120221, end: 20120301
  11. LEPONEX / CLOZARIL [Suspect]
     Dosage: 400 MG, DAILY
     Route: 048
     Dates: start: 20120302, end: 20120308
  12. LEPONEX / CLOZARIL [Suspect]
     Dosage: 500 MG, DAILY
     Route: 048
     Dates: start: 20120309, end: 20120315
  13. LEPONEX / CLOZARIL [Suspect]
     Dosage: 600 MG, DAILY
     Route: 048
     Dates: start: 20120316, end: 20120509
  14. LEPONEX / CLOZARIL [Suspect]
     Dosage: 500 MG, DAILY
     Route: 048
     Dates: start: 20120510, end: 20120627
  15. LEPONEX / CLOZARIL [Suspect]
     Dosage: 400 MG, DAILY
     Route: 048
     Dates: start: 20120628, end: 20120718
  16. LEPONEX / CLOZARIL [Suspect]
     Dosage: 500 MG, DAILY
     Route: 048
     Dates: start: 20120719
  17. LIMAS [Suspect]
     Indication: SCHIZOPHRENIA, CATATONIC TYPE
     Dosage: 1200 MG, DAILY
     Route: 048
     Dates: start: 20090807, end: 20120425
  18. LIMAS [Suspect]
     Dosage: 400 MG, DAILY
     Route: 048
     Dates: start: 20120426, end: 20120912
  19. MAALOX [Concomitant]
     Indication: CONSTIPATION
     Dosage: 3.6 G, UNK
     Route: 048
     Dates: start: 20111118
  20. MAGNESIUM OXIDE [Concomitant]
     Indication: CONSTIPATION
     Dosage: 1.5 G, UNK
     Route: 048
     Dates: start: 20120125
  21. MAGNESIUM OXIDE [Concomitant]
     Dosage: 1.5 G, UNK
     Route: 048
  22. MAGNESIUM OXIDE [Concomitant]
     Dosage: 1.0 G, UNK
     Route: 048
     Dates: end: 20121003
  23. AMOBAN [Concomitant]
     Indication: SCHIZOPHRENIA, CATATONIC TYPE
     Dosage: 10 MG, UNK
     Route: 048
     Dates: start: 20090616, end: 20120329
  24. AMOBANTES [Concomitant]
     Indication: SCHIZOPHRENIA, CATATONIC TYPE
     Dosage: 10 MG, UNK
     Route: 048
     Dates: start: 20120330
  25. AMOBANTES [Concomitant]
     Dosage: 10 MG, UNK
     Route: 048
     Dates: end: 20120905
  26. PANTOSIN [Concomitant]
     Indication: CONSTIPATION
     Dosage: 600 MG, UNK
     Route: 048
     Dates: start: 20110408
  27. PANTOSIN [Concomitant]
     Dosage: 400 MG, UNK
     Route: 048
  28. PANTOSIN [Concomitant]
     Dosage: 200 MG, UNK
  29. PANTOSIN [Concomitant]
     Dosage: 300 MG, UNK
     Dates: end: 20120917
  30. MIYA BM [Concomitant]
     Indication: CONSTIPATION
     Dosage: 3 G, UNK
     Route: 048
     Dates: start: 20121018
  31. MIYA BM [Concomitant]
     Dosage: 6 G, UNK
     Route: 048
     Dates: end: 20121114
  32. MIYA BM [Concomitant]
     Dosage: 3 G, UNK
     Route: 048
  33. MIYA BM [Concomitant]
     Dosage: 6 G, UNK
     Route: 048
  34. MIYA BM [Concomitant]
     Dosage: 3 G, UNK
  35. MIYA BM [Concomitant]
     Dosage: 2 G, UNK
     Route: 048
  36. MAGMITT [Concomitant]
     Indication: CONSTIPATION
     Dosage: 1980 MG, UNK
     Route: 048
     Dates: start: 20121115
  37. MAGMITT [Concomitant]
     Dosage: 990 MG, UNK
     Route: 048
  38. MAGMITT [Concomitant]
     Dosage: 990 MG, UNK
     Route: 048
  39. MAGMITT [Concomitant]
     Dosage: 1980 MG, UNK
     Route: 048
  40. MAGMITT [Concomitant]
     Dosage: 1320 MG, UNK
     Route: 048
  41. MAGMITT [Concomitant]
     Dosage: 600 MG, UNK
     Route: 048
  42. AMOXAN [Concomitant]
     Indication: SCHIZOPHRENIA, CATATONIC TYPE
     Dosage: 150 MG, UNK
     Route: 048
     Dates: start: 20111227, end: 20120216
  43. TOPINA [Concomitant]
     Indication: SCHIZOPHRENIA, CATATONIC TYPE
     Dosage: 200 MG, UNK
     Route: 048
     Dates: start: 20100816, end: 20120312
  44. BENZALIN [Concomitant]
     Indication: SCHIZOPHRENIA, CATATONIC TYPE
     Dosage: 10 MG, UNK
     Route: 048
     Dates: start: 20081226
  45. BENZALIN [Concomitant]
     Dosage: 5 MG, UNK
     Route: 048
     Dates: end: 20120312
  46. BENZALIN [Concomitant]
     Dosage: 2 MG, UNK
     Route: 048
     Dates: end: 20120616
  47. ROZEREM [Concomitant]
     Indication: SCHIZOPHRENIA, CATATONIC TYPE
     Dosage: 8 MG, UNK
     Route: 048
     Dates: start: 20120229, end: 20120701
  48. LEUCON [Concomitant]
     Dosage: 30 MG, UNK
     Route: 048
     Dates: start: 20121129
  49. LEUCON [Concomitant]
     Dosage: 60 MG, UNK
     Route: 048
  50. DEPAKENE-R [Concomitant]
     Indication: SCHIZOPHRENIA, CATATONIC TYPE
     Dosage: 400 MG, UNK
     Route: 048
     Dates: start: 20130126, end: 20140122
  51. EPADEL [Concomitant]
     Indication: SCHIZOPHRENIA, CATATONIC TYPE
     Dosage: 1800 MG, UNK
     Route: 048
     Dates: start: 20130404
  52. GANATON [Concomitant]
     Dosage: 100 MG, UNK
     Route: 048
     Dates: start: 20130530
  53. GASMOTIN [Concomitant]
     Dosage: 15 MG, UNK
     Route: 048
     Dates: start: 20130613
  54. KEFRAL [Concomitant]
     Dosage: 750 MG, UNK
     Route: 048
     Dates: start: 20131226, end: 20140101

REACTIONS (7)
  - Convulsion [Not Recovered/Not Resolved]
  - Electroencephalogram abnormal [Unknown]
  - Musculoskeletal stiffness [Unknown]
  - Eye movement disorder [Unknown]
  - Fall [Unknown]
  - Discomfort [Recovering/Resolving]
  - Asthenia [Recovering/Resolving]
